FAERS Safety Report 4690611-0 (Version None)
Quarter: 2005Q2

REPORT INFORMATION
  Report Type: 
  Country: None (occurrence: None)
  Receive Date: 20050614
  Receipt Date: 20050614
  Transmission Date: 20051028
  Serious: Yes (Hospitalization)
  Sender: FDA-Public Use
  Company Number: None

PATIENT
  Age: 70 Year
  Sex: Female

DRUGS (3)
  1. GABAPENTIN [Suspect]
     Dates: start: 20040713, end: 20040718
  2. MORPHINE [Concomitant]
  3. ZOSYN [Concomitant]

REACTIONS (3)
  - CONVULSION [None]
  - HYPOTENSION [None]
  - MENTAL STATUS CHANGES [None]
